FAERS Safety Report 12840361 (Version 2)
Quarter: 2017Q2

REPORT INFORMATION
  Report Type: Report from Study
  Country: US (occurrence: US)
  Receive Date: 20161012
  Receipt Date: 20170525
  Transmission Date: 20170830
  Serious: Yes (Hospitalization)
  Sender: FDA-Public Use
  Company Number: US-SA-2016SA184514

PATIENT
  Age: 53 Year
  Sex: Female

DRUGS (1)
  1. LEMTRADA [Suspect]
     Active Substance: ALEMTUZUMAB
     Indication: MULTIPLE SCLEROSIS
     Route: 041
     Dates: start: 20160911, end: 20160915

REACTIONS (10)
  - Gait disturbance [Recovered/Resolved]
  - Rash [Unknown]
  - Hepatic enzyme increased [Recovered/Resolved]
  - Asthenia [Not Recovered/Not Resolved]
  - Immunodeficiency [Not Recovered/Not Resolved]
  - Multiple sclerosis relapse [Unknown]
  - Fluid retention [Unknown]
  - Urticaria [Unknown]
  - Ill-defined disorder [Unknown]
  - Muscular weakness [Recovered/Resolved]
